FAERS Safety Report 8288014-5 (Version None)
Quarter: 2012Q2

REPORT INFORMATION
  Report Type: 
  Country: None (occurrence: None)
  Receive Date: 20120416
  Receipt Date: 20120411
  Transmission Date: 20120825
  Serious: Yes (Other)
  Sender: FDA-Public Use
  Company Number: CA-GLAXOSMITHKLINE-A0973443A

PATIENT
  Age: 73 Year
  Sex: Female

DRUGS (6)
  1. CENTRUM [Concomitant]
  2. LAPATINIB [Suspect]
     Indication: BREAST CANCER
     Dosage: 750MG PER DAY
     Route: 048
     Dates: start: 20101028
  3. FORETINIB [Suspect]
     Indication: BREAST CANCER
     Dosage: 30MG PER DAY
     Route: 048
     Dates: start: 20101028
  4. METFORMIN HCL [Concomitant]
  5. ATACAND [Concomitant]
  6. FELODIPINE [Concomitant]

REACTIONS (1)
  - PROTEINURIA [None]
